FAERS Safety Report 6109615-6 (Version None)
Quarter: 2009Q1

REPORT INFORMATION
  Report Type: 
  Country: None (occurrence: None)
  Receive Date: 20090310
  Receipt Date: 20090302
  Transmission Date: 20090719
  Serious: Yes (Hospitalization)
  Sender: FDA-Public Use
  Company Number: PHEH2009US02181

PATIENT
  Sex: Female

DRUGS (6)
  1. RECLAST [Suspect]
     Dosage: UNK
     Dates: start: 20081119
  2. XANAX [Concomitant]
  3. LEXAPRO [Concomitant]
  4. SPIRIVA [Concomitant]
  5. PROAIR NASAL [Concomitant]
  6. ADVAIR HFA [Concomitant]

REACTIONS (8)
  - BONE PAIN [None]
  - KIDNEY INFECTION [None]
  - MUSCLE SPASMS [None]
  - ORAL PAIN [None]
  - PYREXIA [None]
  - RESPIRATORY TRACT INFECTION [None]
  - URINARY TRACT INFECTION [None]
  - VOMITING [None]
